FAERS Safety Report 4609069-2 (Version None)
Quarter: 2005Q1

REPORT INFORMATION
  Report Type: 
  Country: None (occurrence: None)
  Receive Date: 20050311
  Receipt Date: 20050301
  Transmission Date: 20050727
  Serious: Yes (Hospitalization)
  Sender: FDA-Public Use
  Company Number: MEDI-0002869

PATIENT
  Age: 13 Month
  Weight: 6.804 kg

DRUGS (6)
  1. SYNAGIS [Suspect]
     Indication: ANTIVIRAL PROPHYLAXIS
     Dosage: SEE IMAGE
     Route: 030
     Dates: start: 20041101, end: 20041229
  2. SYNAGIS [Suspect]
     Indication: ANTIVIRAL PROPHYLAXIS
     Dosage: SEE IMAGE
     Route: 030
     Dates: start: 20041101
  3. SYNAGIS [Suspect]
     Indication: ANTIVIRAL PROPHYLAXIS
     Dosage: SEE IMAGE
     Route: 030
     Dates: start: 20041129
  4. PULMICORT [Concomitant]
  5. XOPENEX [Concomitant]
  6. ORAPRED [Concomitant]

REACTIONS (5)
  - ASTHMA [None]
  - OXYGEN SATURATION DECREASED [None]
  - RESPIRATORY RATE INCREASED [None]
  - RESPIRATORY SYNCYTIAL VIRUS INFECTION [None]
  - VIRUS SEROLOGY TEST POSITIVE [None]
